FAERS Safety Report 14461312 (Version 3)
Quarter: 2018Q3

REPORT INFORMATION
  Report Type: Spontaneous
  Country: US (occurrence: US)
  Receive Date: 20180130
  Receipt Date: 20180716
  Transmission Date: 20181010
  Serious: Yes (Hospitalization, Other)
  Sender: FDA-Public Use
  Company Number: US-PFIZER INC-2018038215

PATIENT
  Age: 23 Year
  Sex: Female
  Weight: 61 kg

DRUGS (6)
  1. OMNIPAQUE [Suspect]
     Active Substance: IOHEXOL
     Dosage: 79ML OF 300MG/ML FOR A TOTAL DOSE OF 23700MG
     Route: 042
     Dates: start: 20180123, end: 20180123
  2. FENTANYL CITRATE. [Suspect]
     Active Substance: FENTANYL CITRATE
     Indication: SEDATION
     Dosage: 175 UG, TOTAL (TOTAL 175MCG (25MCG GIVEN AT 08:07, 08:15, 08:31, 08:47, 09:14, 50MCG 08:19)
     Route: 042
     Dates: start: 20180123, end: 20180123
  3. FENTANYL CITRATE. [Suspect]
     Active Substance: FENTANYL CITRATE
     Indication: ANGIOGRAM CEREBRAL
  4. OMNIPAQUE [Suspect]
     Active Substance: IOHEXOL
     Dosage: 30ML OF 240MG/ML FOR A DOSE OF 7200MG
     Route: 042
     Dates: start: 20180123, end: 20180123
  5. MIDAZOLAM [Concomitant]
     Active Substance: MIDAZOLAM HYDROCHLORIDE
     Indication: SEDATION
     Dosage: 3.5 MG, INCREMENTAL DOSES
     Route: 042
     Dates: start: 20180123, end: 20180123
  6. HEPARINISED SALINE [Concomitant]
     Active Substance: HEPARIN SODIUM
     Dosage: UNK
     Dates: start: 20180123

REACTIONS (9)
  - Seizure [Recovering/Resolving]
  - Heart rate increased [Recovered/Resolved]
  - Asthenia [Unknown]
  - Blood pressure increased [Recovered/Resolved]
  - Gaze palsy [Recovered/Resolved]
  - Tremor [Recovered/Resolved]
  - Musculoskeletal disorder [Recovered/Resolved]
  - Eye movement disorder [Recovered/Resolved]
  - Chills [Recovered/Resolved]

NARRATIVE: CASE EVENT DATE: 20180123
